FAERS Safety Report 24708212 (Version 6)
Quarter: 2025Q3

REPORT INFORMATION
  Report Type: Spontaneous
  Country: CH (occurrence: CH)
  Receive Date: 20241207
  Receipt Date: 20250826
  Transmission Date: 20251020
  Serious: Yes (Hospitalization, Other)
  Sender: SANDOZ
  Company Number: CH-002147023-NVSC2020CH045131

PATIENT
  Age: 82 Year
  Sex: Female
  Weight: 56 kg

DRUGS (5)
  1. ANASTROZOLE [Suspect]
     Active Substance: ANASTROZOLE
     Indication: Breast cancer
     Dosage: 1 MG, QD;
     Route: 048
     Dates: start: 20191121, end: 20200708
  2. FULVESTRANT [Suspect]
     Active Substance: FULVESTRANT
     Indication: Breast cancer
     Route: 030
     Dates: start: 20200709
  3. RIBOCICLIB [Suspect]
     Active Substance: RIBOCICLIB
     Dosage: 200 MG, QD (3 WEEKS ON 1 WEEK OFF); START DATE: 21-NOV-2019
     Route: 048
     Dates: start: 20191121
  4. RIBOCICLIB [Suspect]
     Active Substance: RIBOCICLIB
     Dosage: 200 MG, QD 3 WEEKS ON, 1 WEEK OFF)
     Route: 048
     Dates: start: 20191204, end: 20240403
  5. RIBOCICLIB [Suspect]
     Active Substance: RIBOCICLIB
     Indication: Breast cancer
     Route: 048
     Dates: start: 20191121, end: 20191203

REACTIONS (5)
  - Fall [Recovered/Resolved]
  - Rib fracture [Recovered/Resolved]
  - Anaemia [Recovered/Resolved]
  - Blood creatinine increased [Not Recovered/Not Resolved]
  - Pruritus [Not Recovered/Not Resolved]
